FAERS Safety Report 7020959-6 (Version None)
Quarter: 2010Q3

REPORT INFORMATION
  Report Type: 
  Country: None (occurrence: None)
  Receive Date: 20100929
  Receipt Date: 20091221
  Transmission Date: 20110219
  Serious: No
  Sender: FDA-Public Use
  Company Number: A0836211A

PATIENT
  Age: 37 Year
  Sex: Female

DRUGS (4)
  1. RELENZA [Suspect]
     Dosage: 1PUFF FOUR TIMES PER DAY
     Route: 055
     Dates: start: 20091216, end: 20091219
  2. IBUPROFEN [Concomitant]
  3. THERAFLU [Concomitant]
  4. ASCORBIC ACID [Concomitant]

REACTIONS (4)
  - DIZZINESS [None]
  - DYSPNOEA [None]
  - HEADACHE [None]
  - RASH GENERALISED [None]
